FAERS Safety Report 4304100-6 (Version None)
Quarter: 2004Q1

REPORT INFORMATION
  Report Type: 
  Country: None (occurrence: None)
  Receive Date: 20040223
  Receipt Date: 20031216
  Transmission Date: 20041129
  Serious: No
  Sender: FDA-Public Use
  Company Number: PHEH2003US11444

PATIENT
  Age: 51 Year
  Sex: Female

DRUGS (2)
  1. ZELNORM [Suspect]
     Indication: IRRITABLE BOWEL SYNDROME
     Dates: start: 20031121
  2. CLINDAMYCIN (CLINDAMYCIN) [Concomitant]

REACTIONS (4)
  - BLADDER PAIN [None]
  - BLADDER SPASM [None]
  - DYSURIA [None]
  - GENITAL PRURITUS FEMALE [None]
